FAERS Safety Report 4337239-X (Version None)
Quarter: 2004Q2

REPORT INFORMATION
  Report Type: 
  Country: None (occurrence: None)
  Receive Date: 20040408
  Receipt Date: 20040216
  Transmission Date: 20050107
  Serious: Yes (Other)
  Sender: FDA-Public Use
  Company Number: PHBS2004TR04369

PATIENT
  Age: 72 Year
  Sex: Male

DRUGS (2)
  1. VISUDYNE [Suspect]
     Indication: CHOROIDAL NEOVASCULARISATION
     Dosage: 5 MG/M^2 ONCE IV
     Route: 042
  2. VISUDYNE [Suspect]
     Indication: MACULAR DEGENERATION
     Dosage: 5 MG/M^2 ONCE IV
     Route: 042

REACTIONS (5)
  - EYE HAEMORRHAGE [None]
  - MACULAR OEDEMA [None]
  - RETINAL DETACHMENT [None]
  - RETINAL TEAR [None]
  - VISUAL ACUITY REDUCED [None]
